FAERS Safety Report 9680283 (Version 1)
Quarter: 2013Q4

REPORT INFORMATION
  Report Type: Spontaneous
  Country: US (occurrence: US)
  Receive Date: 20131111
  Receipt Date: 20131111
  Transmission Date: 20140711
  Serious: Yes (Hospitalization)
  Sender: FDA-Public Use
  Company Number: US-BRISTOL-MYERS SQUIBB COMPANY-19722321

PATIENT
  Age: 77 Year
  Sex: Male
  Weight: 70.29 kg

DRUGS (21)
  1. COUMADIN [Suspect]
     Indication: DEEP VEIN THROMBOSIS
     Dates: start: 20130717, end: 20130813
  2. XARELTO [Suspect]
     Indication: THROMBOSIS PROPHYLAXIS
     Dosage: TAB
     Route: 048
     Dates: start: 20130718, end: 20130811
  3. XARELTO [Suspect]
     Indication: KNEE ARTHROPLASTY
     Dosage: TAB
     Route: 048
     Dates: start: 20130718, end: 20130811
  4. OXYCODONE [Concomitant]
     Indication: PAIN
     Dosage: EVERY 4 HRS UP TO 2 TABS?TAB
     Route: 048
     Dates: start: 201307
  5. MORPHINE [Concomitant]
     Indication: KNEE OPERATION
  6. COMPAZINE [Concomitant]
  7. HYDROCHLOROTHIAZIDE [Concomitant]
     Dosage: TAB
  8. ALPRAZOLAM [Concomitant]
     Indication: ANXIETY
     Route: 048
  9. MELATONIN [Concomitant]
     Indication: INSOMNIA
     Route: 048
  10. ZOLPIDEM [Concomitant]
     Indication: INSOMNIA
     Route: 048
  11. MESALAZINE [Concomitant]
     Dosage: CAPS
     Route: 048
  12. DILTIAZEM CD [Concomitant]
     Route: 048
  13. LANSOPRAZOLE [Concomitant]
     Dosage: HOUR OF SLEEP
     Route: 048
  14. DIOVAN [Concomitant]
     Route: 048
  15. POTASSIUM CHLORIDE [Concomitant]
     Route: 048
  16. MELOXICAM [Concomitant]
     Route: 048
  17. TERAZOSIN [Concomitant]
     Dosage: 5 MG 1 IN 1 HR
     Route: 048
  18. LOVASTATIN [Concomitant]
     Route: 048
  19. CALCIUM + VITAMIN D [Concomitant]
     Dosage: CALCIUM 600 AND VITAMIN D
     Route: 048
  20. CARDIZEM [Concomitant]
  21. LOVENOX [Concomitant]

REACTIONS (6)
  - Cerebrovascular accident [Recovered/Resolved]
  - Dystonia [Recovered/Resolved]
  - Hypoxia [Recovered/Resolved]
  - Abdominal discomfort [Recovering/Resolving]
  - Presyncope [Recovered/Resolved]
  - Nausea [Recovered/Resolved]
